FAERS Safety Report 7586015-3 (Version None)
Quarter: 2011Q2

REPORT INFORMATION
  Report Type: 
  Country: None (occurrence: None)
  Receive Date: 20110624
  Receipt Date: 20110615
  Transmission Date: 20111010
  Serious: Yes (Other)
  Sender: FDA-Public Use
  Company Number: 2011SP028035

PATIENT
  Age: 4 Year
  Sex: Female

DRUGS (1)
  1. DULERA TABLET [Suspect]
     Indication: ASTHMA
     Dosage: INH
     Route: 055
     Dates: start: 20100101

REACTIONS (6)
  - SLEEP DISORDER [None]
  - NERVOUSNESS [None]
  - MOOD ALTERED [None]
  - AGITATION [None]
  - AGGRESSION [None]
  - FEELING JITTERY [None]
